FAERS Safety Report 16571659 (Version 2)
Quarter: 2019Q3

REPORT INFORMATION
  Report Type: Report from Study
  Country: ES (occurrence: ES)
  Receive Date: 20190715
  Receipt Date: 20190829
  Transmission Date: 20191004
  Serious: Yes (Death, Hospitalization, Other)
  Sender: FDA-Public Use
  Company Number: ES-ACTELION-A-CH2019-184591

PATIENT
  Age: 82 Year
  Sex: Female
  Weight: 55 kg

DRUGS (6)
  1. OPSUMIT [Suspect]
     Active Substance: MACITENTAN
     Indication: PULMONARY ARTERIAL HYPERTENSION
     Dosage: 10 MG, QD
     Route: 048
     Dates: end: 20190522
  2. TRAMADOL. [Concomitant]
     Active Substance: TRAMADOL
     Indication: PAIN
     Dosage: UNK
     Route: 048
     Dates: start: 20180419, end: 20190522
  3. DEFLAZACORT [Concomitant]
     Active Substance: DEFLAZACORT
     Indication: SYSTEMIC SCLERODERMA
     Dosage: UNK
     Route: 048
     Dates: start: 20180419, end: 20190522
  4. TORASEMIDA [Concomitant]
     Active Substance: TORSEMIDE
     Indication: VASCULITIS
     Dosage: UNK
     Route: 048
     Dates: start: 20180510, end: 20190522
  5. ALLOPURINOL. [Concomitant]
     Active Substance: ALLOPURINOL
     Indication: HYPERURICAEMIA
     Dosage: UNK
     Route: 048
     Dates: start: 20180510, end: 20190522
  6. PANTOPRAZOL [Concomitant]
     Active Substance: PANTOPRAZOLE SODIUM
     Indication: PROPHYLAXIS
     Dosage: UNK
     Route: 048
     Dates: start: 20180419, end: 20190522

REACTIONS (10)
  - End stage renal disease [Fatal]
  - Haematemesis [Recovered/Resolved]
  - Hepatic failure [Fatal]
  - Hepatorenal syndrome [Fatal]
  - Ascites [Fatal]
  - Pneumonia [Unknown]
  - Gastrointestinal haemorrhage [Recovered/Resolved]
  - Abnormal faeces [Recovered/Resolved]
  - Renal failure [Fatal]
  - Renal impairment [Fatal]

NARRATIVE: CASE EVENT DATE: 20181227
